FAERS Safety Report 8178754-0 (Version None)
Quarter: 2012Q1

REPORT INFORMATION
  Report Type: 
  Country: None (occurrence: None)
  Receive Date: 20120301
  Receipt Date: 20120301
  Transmission Date: 20120608
  Serious: Yes (Other)
  Sender: FDA-Public Use
  Company Number: None

PATIENT
  Age: 69 Year
  Sex: Female
  Weight: 75 kg

DRUGS (2)
  1. ELOXATIN [Suspect]
     Indication: COLON CANCER
     Dosage: 160MG
     Route: 041
     Dates: start: 20120201, end: 20120201
  2. ELOXATIN [Concomitant]

REACTIONS (3)
  - VOMITING [None]
  - PERIPHERAL COLDNESS [None]
  - NAUSEA [None]
